FAERS Safety Report 7325197-5 (Version None)
Quarter: 2011Q1

REPORT INFORMATION
  Report Type: 
  Country: None (occurrence: None)
  Receive Date: 20110218
  Receipt Date: 20110204
  Transmission Date: 20110831
  Serious: Yes (Other)
  Sender: FDA-Public Use
  Company Number: 027055

PATIENT
  Age: 9 Year
  Sex: Female

DRUGS (5)
  1. XYZAL [Suspect]
     Indication: SEASONAL ALLERGY
     Dosage: ORAL
     Route: 048
     Dates: start: 20110131
  2. RISPERDAL [Suspect]
     Dosage: ORAL
     Route: 048
  3. BUP-4 [Concomitant]
  4. KIPRES [Concomitant]
  5. DESMOPRESSIN ACETATE [Concomitant]

REACTIONS (3)
  - HYPERACUSIS [None]
  - DYSARTHRIA [None]
  - HALLUCINATION, AUDITORY [None]
